FAERS Safety Report 11156224 (Version 1)
Quarter: 2015Q2

REPORT INFORMATION
  Report Type: Spontaneous
  Country: US (occurrence: None)
  Receive Date: 20150601
  Receipt Date: 20150601
  Transmission Date: 20150821
  Serious: Yes (Other)
  Sender: FDA-Public Use
  Company Number: None

PATIENT
  Age: 52 Year
  Sex: Male
  Weight: 83.46 kg

DRUGS (6)
  1. EFFEXOR [Concomitant]
     Active Substance: VENLAFAXINE HYDROCHLORIDE
  2. DECADRON [Suspect]
     Active Substance: DEXAMETHASONE
     Indication: DYSPNOEA
     Dosage: INTO A VEIN
  3. DOXICYCLINE /00055701/ [Concomitant]
     Active Substance: DOXYCYCLINE
  4. PROTINICS [Concomitant]
  5. ALBUTEROL. [Concomitant]
     Active Substance: ALBUTEROL
  6. PAMELOR [Concomitant]
     Active Substance: NORTRIPTYLINE HYDROCHLORIDE

REACTIONS (2)
  - Anorectal discomfort [None]
  - Vulvovaginal burning sensation [None]

NARRATIVE: CASE EVENT DATE: 20150531
